FAERS Safety Report 12145504 (Version 1)
Quarter: 2016Q1

REPORT INFORMATION
  Report Type: Spontaneous
  Country: US (occurrence: US)
  Receive Date: 20160304
  Receipt Date: 20160304
  Transmission Date: 20160526
  Serious: Yes (Hospitalization, Other)
  Sender: FDA-Public Use
  Company Number: US-BIOGEN-2013BI085110

PATIENT
  Sex: Female

DRUGS (3)
  1. AVONEX [Suspect]
     Active Substance: INTERFERON BETA-1A
     Route: 030
  2. AVONEX [Suspect]
     Active Substance: INTERFERON BETA-1A
     Indication: MULTIPLE SCLEROSIS
     Route: 030
     Dates: start: 20060311, end: 20070318
  3. AVONEX [Suspect]
     Active Substance: INTERFERON BETA-1A
     Route: 030
     Dates: start: 20140523, end: 201406

REACTIONS (31)
  - Influenza like illness [Recovered/Resolved]
  - Hypersensitivity [Recovered/Resolved]
  - Urticaria [Recovered/Resolved]
  - Peritonitis [Recovered/Resolved]
  - Rubber sensitivity [Recovered/Resolved]
  - Insomnia [Recovered/Resolved]
  - Toxicity to various agents [Not Recovered/Not Resolved]
  - Fall [Recovered/Resolved]
  - Incontinence [Not Recovered/Not Resolved]
  - Heat illness [Unknown]
  - Concussion [Unknown]
  - Enteritis infectious [Unknown]
  - Potentiating drug interaction [Unknown]
  - Overdose [Unknown]
  - Atrial fibrillation [Unknown]
  - Cholecystitis acute [Recovered/Resolved]
  - Gallbladder perforation [Unknown]
  - Gait disturbance [Not Recovered/Not Resolved]
  - Muscle spasticity [Unknown]
  - Hyperhidrosis [Not Recovered/Not Resolved]
  - Myelitis transverse [Not Recovered/Not Resolved]
  - Acute kidney injury [Unknown]
  - Fear of injection [Recovered/Resolved]
  - Extremity contracture [Unknown]
  - Tendon rupture [Recovered/Resolved]
  - Temperature regulation disorder [Not Recovered/Not Resolved]
  - Chronic fatigue syndrome [Not Recovered/Not Resolved]
  - Pancreatic atrophy [Not Recovered/Not Resolved]
  - Renal cancer [Recovered/Resolved]
  - Coma [Unknown]
  - Nervous system disorder [Not Recovered/Not Resolved]

NARRATIVE: CASE EVENT DATE: 2007
